FAERS Safety Report 12869192 (Version 2)
Quarter: 2016Q4

REPORT INFORMATION
  Report Type: Spontaneous
  Country: CN (occurrence: CN)
  Receive Date: 20161021
  Receipt Date: 20161102
  Transmission Date: 20170207
  Serious: Yes (Other)
  Sender: FDA-Public Use
  Company Number: CN-ROCHE-1844943

PATIENT

DRUGS (2)
  1. ACTILYSE [Suspect]
     Active Substance: ALTEPLASE
     Indication: ACUTE MYOCARDIAL INFARCTION
     Dosage: FIRST DOSE: 15MG THROUGH INTRAVENOUS INJECTION; AFTER30 MINUTES, SECOND DOSE: 50 MG THROUGH CONTINUO
     Route: 042
  2. HEPARIN CALCIUM [Suspect]
     Active Substance: HEPARIN CALCIUM
     Indication: ACUTE MYOCARDIAL INFARCTION
     Route: 058

REACTIONS (1)
  - Left ventricular failure [Unknown]
